FAERS Safety Report 4366745-7 (Version None)
Quarter: 2004Q2

REPORT INFORMATION
  Report Type: 
  Country: None (occurrence: None)
  Receive Date: 20040527
  Receipt Date: 20040517
  Transmission Date: 20050107
  Serious: Yes (Other)
  Sender: FDA-Public Use
  Company Number: 04-03-0441

PATIENT
  Age: 46 Year
  Sex: Male

DRUGS (2)
  1. CLOZAPINE [Suspect]
     Indication: SCHIZOPHRENIA
     Dosage: 200-500MG QD ORAL
     Route: 048
     Dates: start: 19991101, end: 20040301
  2. CHEMOTHERAPY UNKNOWN [Suspect]
     Indication: HODGKIN'S DISEASE

REACTIONS (4)
  - AGITATION [None]
  - AGRANULOCYTOSIS [None]
  - FEAR [None]
  - HODGKIN'S DISEASE [None]
